FAERS Safety Report 4274638-9 (Version None)
Quarter: 2004Q1

REPORT INFORMATION
  Report Type: 
  Country: None (occurrence: None)
  Receive Date: 20040120
  Receipt Date: 20010207
  Transmission Date: 20041129
  Serious: Yes (Hospitalization)
  Sender: FDA-Public Use
  Company Number: 2001SUS0115

PATIENT
  Age: 46 Year
  Sex: Female

DRUGS (10)
  1. STOCRIN [Suspect]
     Indication: ACQUIRED IMMUNODEFICIENCY SYNDROME
     Route: 048
     Dates: start: 20000218
  2. STAVUDINE CAPS [Suspect]
     Indication: ACQUIRED IMMUNODEFICIENCY SYNDROME
     Dosage: INTERRUPTED FROM 17-FEB-2000 UNTIL 05-DEC-2002
     Route: 048
     Dates: start: 19981101
  3. RETROVIR [Suspect]
     Indication: ACQUIRED IMMUNODEFICIENCY SYNDROME
     Dosage: DOSAGE INCREASED TO 600 MG/DAY FROM 6/15 TO 6/22/00
     Route: 048
     Dates: start: 19970901, end: 20000622
  4. EPIVIR [Suspect]
     Indication: ACQUIRED IMMUNODEFICIENCY SYNDROME
     Dosage: INTERRUPTED 22-JUN-2000 TO 01-APR-2001
     Route: 048
     Dates: start: 19981101
  5. LAMIVUDINE + ZIDOVUDINE [Suspect]
     Indication: ACQUIRED IMMUNODEFICIENCY SYNDROME
     Route: 048
     Dates: start: 20000623, end: 20021205
  6. VIRACEPT [Suspect]
     Indication: ACQUIRED IMMUNODEFICIENCY SYNDROME
     Dosage: DOSAGE INCREASED TO 1.25 MG TWICE DAILY FROM 3/15/99 TO 2/17/00
     Route: 048
     Dates: start: 19970901, end: 20000217
  7. INSULIN [Concomitant]
     Route: 058
     Dates: start: 19971002
  8. CLARITHROMYCIN [Concomitant]
     Dates: start: 19981101, end: 19990421
  9. SULFAMETHOXAZOLE + TRIMETHOPRIM [Concomitant]
     Dosage: DOSE RANGE - 1 TO 12 TABLETS
     Route: 048
     Dates: start: 19970901, end: 19990819
  10. PENTAMIDINE ISETHIONATE [Concomitant]
     Dosage: THEN 300 MG ORALLY AND 300 MG TOPICALLY FROM 27 SEP 1997 TO 15 OCT 1997
     Route: 042
     Dates: start: 19970915, end: 19970927

REACTIONS (11)
  - ANAEMIA [None]
  - CALCULUS URINARY [None]
  - CONSTIPATION [None]
  - DIABETES MELLITUS [None]
  - HERPES SIMPLEX [None]
  - HYPERCHOLESTEROLAEMIA [None]
  - HYPERGLYCAEMIA [None]
  - LIPODYSTROPHY ACQUIRED [None]
  - PNEUMOCYSTIS CARINII INFECTION [None]
  - PNEUMOCYSTIS CARINII PNEUMONIA [None]
  - URINE ABNORMALITY [None]
